FAERS Safety Report 9416322 (Version 1)
Quarter: 2013Q3

REPORT INFORMATION
  Report Type: Spontaneous
  Country: US (occurrence: US)
  Receive Date: 20130724
  Receipt Date: 20130724
  Transmission Date: 20140515
  Serious: No
  Sender: FDA-Public Use
  Company Number: US-BAYER-2013-089365

PATIENT
  Age: 88 Year
  Sex: Female
  Weight: 54 kg

DRUGS (4)
  1. ALEVE TABLET [Suspect]
     Indication: PAIN
     Dosage: 1 DF, QD
     Route: 048
     Dates: start: 20130715
  2. METOPROLOL [Concomitant]
  3. BENICAR [Concomitant]
  4. ZOLPIDEM [Concomitant]

REACTIONS (1)
  - Drug ineffective [None]
